FAERS Safety Report 17223062 (Version 1)
Quarter: 2020Q1

REPORT INFORMATION
  Report Type: Spontaneous
  Country: US (occurrence: US)
  Receive Date: 20200102
  Receipt Date: 20200102
  Transmission Date: 20200409
  Serious: No
  Sender: FDA-Public Use
  Company Number: US-009507513-1912USA008712

PATIENT
  Age: 23 Year
  Sex: Male

DRUGS (4)
  1. HEPARIN [Concomitant]
     Active Substance: HEPARIN SODIUM
     Indication: PULMONARY INFARCTION
     Route: 042
  2. RIVAROXABAN [Concomitant]
     Active Substance: RIVAROXABAN
     Dosage: 10 MILLIGRAM, QD
  3. PRINIVIL [Suspect]
     Active Substance: LISINOPRIL
     Indication: PULMONARY INFARCTION
     Dosage: 40 MILLIGRAM, DAILY
     Route: 048
  4. RIVAROXABAN [Concomitant]
     Active Substance: RIVAROXABAN
     Indication: PULMONARY INFARCTION
     Dosage: 15 MILLIGRAM, BID

REACTIONS (1)
  - Product use in unapproved indication [Unknown]
